FAERS Safety Report 13854061 (Version 1)
Quarter: 2017Q3

REPORT INFORMATION
  Report Type: Spontaneous
  Country: US (occurrence: US)
  Receive Date: 20170810
  Receipt Date: 20170810
  Transmission Date: 20171127
  Serious: Yes (Hospitalization)
  Sender: FDA-Public Use
  Company Number: None

PATIENT
  Age: 62 Year
  Sex: Male
  Weight: 147.42 kg

DRUGS (4)
  1. DIVALPROEX ER [Concomitant]
     Active Substance: DIVALPROEX SODIUM
  2. ARIPIPRAZOLE. [Suspect]
     Active Substance: ARIPIPRAZOLE
     Route: 048
  3. ABILIFY [Suspect]
     Active Substance: ARIPIPRAZOLE
     Dosage: ROUTE - INJECTION
  4. ARIPIPRAZOLE. [Suspect]
     Active Substance: ARIPIPRAZOLE
     Indication: BIPOLAR DISORDER
     Route: 048
     Dates: start: 201505, end: 201506

REACTIONS (2)
  - Hallucination, auditory [None]
  - Delusion [None]

NARRATIVE: CASE EVENT DATE: 20150617
